FAERS Safety Report 7809317-1 (Version None)
Quarter: 2011Q4

REPORT INFORMATION
  Report Type: 
  Country: None (occurrence: None)
  Receive Date: 20111012
  Receipt Date: 20111007
  Transmission Date: 20120403
  Serious: No
  Sender: FDA-Public Use
  Company Number: US-B.I. PHARMACEUTICALS,INC./RIDGEFIELD-2011-BP-19151BP

PATIENT
  Age: 55 Year
  Sex: Female

DRUGS (9)
  1. PRADAXA [Suspect]
     Indication: ANTICOAGULANT THERAPY
  2. GLYBURIDE [Concomitant]
     Dosage: 10 MG
  3. CITALOPRAM [Concomitant]
     Dosage: 20 MG
  4. HYDROCHLOROTHIAZIDE [Concomitant]
     Dosage: 25 MG
  5. PRADAXA [Suspect]
     Indication: ATRIAL FIBRILLATION
     Dosage: 300 MG
     Route: 048
     Dates: start: 20110718
  6. METFORMIN HCL [Concomitant]
  7. FISH OIL [Concomitant]
     Dosage: 1000 MG
  8. LISINOPRIL [Concomitant]
     Dosage: 5 MG
  9. METOPROLOL TARTRATE [Concomitant]
     Dosage: 50 MG

REACTIONS (6)
  - CONSTIPATION [None]
  - INSOMNIA [None]
  - DIZZINESS [None]
  - DYSGEUSIA [None]
  - DYSPEPSIA [None]
  - HEADACHE [None]
